FAERS Safety Report 7095781-5 (Version None)
Quarter: 2010Q4

REPORT INFORMATION
  Report Type: 
  Country: None (occurrence: None)
  Receive Date: 20101102
  Receipt Date: 20101025
  Transmission Date: 20110411
  Serious: Yes (Other)
  Sender: FDA-Public Use
  Company Number: 2010SP057257

PATIENT
  Age: 70 Year
  Sex: Male

DRUGS (1)
  1. DIPROSALIC (BETAMETHASONE DIPROPIONATE/SALICYLIC ACID /01401901/) [Suspect]
     Indication: PRODUCT USED FOR UNKNOWN INDICATION

REACTIONS (2)
  - MYALGIA [None]
  - SKIN ULCER [None]
